FAERS Safety Report 16989498 (Version 1)
Quarter: 2019Q4

REPORT INFORMATION
  Report Type: Spontaneous
  Country: US (occurrence: US)
  Receive Date: 20191101
  Receipt Date: 20191101
  Transmission Date: 20200122
  Serious: No
  Sender: FDA-Public Use
  Company Number: None

PATIENT
  Sex: Male

DRUGS (10)
  1. AZITHROMYCIN ANHYDROUS. [Concomitant]
     Active Substance: AZITHROMYCIN ANHYDROUS
  2. ALLOPURINOL. [Concomitant]
     Active Substance: ALLOPURINOL
  3. FINASTERIDE. [Concomitant]
     Active Substance: FINASTERIDE
  4. SAW PALMETTO [Concomitant]
     Active Substance: HERBALS\SAW PALMETTO
  5. BENZONATATE. [Concomitant]
     Active Substance: BENZONATATE
  6. POTASSIUM [Concomitant]
     Active Substance: POTASSIUM
  7. TESTOT [Concomitant]
  8. TAMSULOSIN [Concomitant]
     Active Substance: TAMSULOSIN
  9. HUMIRA [Suspect]
     Active Substance: ADALIMUMAB
     Indication: PSORIATIC ARTHROPATHY
     Dosage: ?          OTHER FREQUENCY:QOWK;?
     Route: 048
     Dates: start: 20180224
  10. LOSARTAN. [Concomitant]
     Active Substance: LOSARTAN

REACTIONS (3)
  - Bronchitis [None]
  - Condition aggravated [None]
  - Product dose omission [None]
